FAERS Safety Report 10846617 (Version 1)
Quarter: 2015Q1

REPORT INFORMATION
  Report Type: Spontaneous
  Country: US (occurrence: US)
  Receive Date: 20150220
  Receipt Date: 20150220
  Transmission Date: 20150721
  Serious: No
  Sender: FDA-Public Use
  Company Number: US-TEVA-542734USA

PATIENT
  Sex: Female

DRUGS (1)
  1. AFTERA [Suspect]
     Active Substance: LEVONORGESTREL
     Indication: POST COITAL CONTRACEPTION
     Dosage: 1.5 MILLIGRAM DAILY;
     Route: 048
     Dates: start: 20150212, end: 20150212

REACTIONS (5)
  - Mood altered [Unknown]
  - Pelvic pain [Unknown]
  - Headache [Unknown]
  - Dysmenorrhoea [Unknown]
  - Decreased appetite [Unknown]
